FAERS Safety Report 17786157 (Version 5)
Quarter: 2020Q2

REPORT INFORMATION
  Report Type: Report from Study
  Country: None (occurrence: ES)
  Receive Date: 20200513
  Receipt Date: 20200629
  Transmission Date: 20200714
  Serious: Yes (Other)
  Sender: FDA-Public Use
  Company Number: ES-ABBVIE-20K-144-3400076-00

PATIENT
  Sex: Male
  Weight: 83 kg

DRUGS (19)
  1. NEMEA [Concomitant]
     Active Substance: CLOZAPINE
     Route: 048
     Dates: start: 20200519, end: 2020
  2. SINTROM [Concomitant]
     Active Substance: ACENOCOUMAROL
     Indication: PRODUCT USED FOR UNKNOWN INDICATION
     Route: 048
  3. ACECLOFENAC [Concomitant]
     Active Substance: ACECLOFENAC
     Indication: PRODUCT USED FOR UNKNOWN INDICATION
     Route: 048
  4. DUODOPA [Suspect]
     Active Substance: CARBIDOPA\LEVODOPA
     Indication: PARKINSON^S DISEASE
     Dosage: CONTINUOUS DOSE 4.1 ML / H
     Route: 050
     Dates: start: 20200130, end: 20200508
  5. SUCRALFATE. [Concomitant]
     Active Substance: SUCRALFATE
     Indication: PRODUCT USED FOR UNKNOWN INDICATION
     Route: 048
  6. DUODOPA [Suspect]
     Active Substance: CARBIDOPA\LEVODOPA
     Dosage: DECREASED CD TO 3.9 ML; LOWERED THE CD TO 3.7 ML/H, LOCK ED TO 0ML
     Route: 050
     Dates: start: 20200508, end: 2020
  7. NEMEA [Concomitant]
     Active Substance: CLOZAPINE
     Indication: PRODUCT USED FOR UNKNOWN INDICATION
     Route: 048
     Dates: end: 20200519
  8. QUETIAPINE. [Concomitant]
     Active Substance: QUETIAPINE
     Indication: PRODUCT USED FOR UNKNOWN INDICATION
     Route: 048
     Dates: end: 20200508
  9. NEMEA [Concomitant]
     Active Substance: CLOZAPINE
     Dosage: 25 MG IN THE MORNING AND?125 MG AT NIGHT
     Route: 048
     Dates: start: 20200618
  10. PREGABALIN. [Concomitant]
     Active Substance: PREGABALIN
     Indication: PRODUCT USED FOR UNKNOWN INDICATION
     Route: 048
  11. OMEPRAZOLE. [Concomitant]
     Active Substance: OMEPRAZOLE
     Indication: PRODUCT USED FOR UNKNOWN INDICATION
     Route: 048
     Dates: start: 20200305
  12. DEPRAX [Concomitant]
     Indication: PRODUCT USED FOR UNKNOWN INDICATION
     Route: 048
  13. QUETIAPINE. [Concomitant]
     Active Substance: QUETIAPINE
     Dosage: AT NIGHT
     Route: 048
     Dates: start: 20200508
  14. RIVOTRIL [Concomitant]
     Active Substance: CLONAZEPAM
     Indication: PRODUCT USED FOR UNKNOWN INDICATION
     Route: 048
  15. DUODOPA [Suspect]
     Active Substance: CARBIDOPA\LEVODOPA
     Dosage: MORNING DOSE 17 ML, CONTINUOUS DOSE 3.7 ML/H
     Route: 050
     Dates: start: 2020, end: 20200604
  16. DUODOPA [Suspect]
     Active Substance: CARBIDOPA\LEVODOPA
     Dosage: MORNING DOSE LOWER TO 15 ML, CONTINUOUS DOSE 3.6 ML/H
     Route: 050
     Dates: start: 20200604
  17. NEMEA [Concomitant]
     Active Substance: CLOZAPINE
     Route: 048
     Dates: start: 20200604
  18. MOTILIUM [Concomitant]
     Active Substance: DOMPERIDONE
     Indication: PRODUCT USED FOR UNKNOWN INDICATION
     Route: 048
     Dates: start: 20200305
  19. NAPROXEN. [Concomitant]
     Active Substance: NAPROXEN
     Indication: PRODUCT USED FOR UNKNOWN INDICATION
     Route: 048
     Dates: start: 20200416

REACTIONS (5)
  - Impulse-control disorder [Recovered/Resolved]
  - Aggression [Recovered/Resolved]
  - Obsessive-compulsive disorder [Recovered/Resolved]
  - Obsessive-compulsive disorder [Recovered/Resolved]
  - Aggression [Recovered/Resolved]

NARRATIVE: CASE EVENT DATE: 2020
